FAERS Safety Report 17091575 (Version 2)
Quarter: 2019Q4

REPORT INFORMATION
  Report Type: Spontaneous
  Country: US (occurrence: US)
  Receive Date: 20191129
  Receipt Date: 20191223
  Transmission Date: 20200122
  Serious: No
  Sender: FDA-Public Use
  Company Number: US-SUNOVION-2019SUN005151

PATIENT
  Sex: Female

DRUGS (6)
  1. LONHALA MAGNAIR [Suspect]
     Active Substance: GLYCOPYRROLATE
     Indication: CHRONIC OBSTRUCTIVE PULMONARY DISEASE
     Dosage: 25 ?G/1 ML , UNK
     Route: 055
     Dates: start: 20191117, end: 20191119
  2. LISINOPRIL. [Concomitant]
     Active Substance: LISINOPRIL
  3. WARFARIN [Concomitant]
     Active Substance: WARFARIN
  4. XANAX [Concomitant]
     Active Substance: ALPRAZOLAM
  5. FLUTICASONE. [Concomitant]
     Active Substance: FLUTICASONE
  6. ALBUTEROL. [Concomitant]
     Active Substance: ALBUTEROL

REACTIONS (5)
  - Tremor [Unknown]
  - Hyperhidrosis [Unknown]
  - Feeling hot [Unknown]
  - Anxiety [Unknown]
  - Dyspnoea [Unknown]
